FAERS Safety Report 12975399 (Version 1)
Quarter: 2016Q4

REPORT INFORMATION
  Report Type: Spontaneous
  Country: US (occurrence: US)
  Receive Date: 20161125
  Receipt Date: 20161125
  Transmission Date: 20170207
  Serious: No
  Sender: FDA-Public Use
  Company Number: US-WEST-WARD PHARMACEUTICALS CORP.-US-H14001-16-01625

PATIENT
  Age: 39 Year
  Sex: Female
  Weight: 70.37 kg

DRUGS (4)
  1. PROGESTERONE. [Suspect]
     Active Substance: PROGESTERONE
     Indication: INFERTILITY FEMALE
     Route: 065
     Dates: start: 20160809, end: 20160811
  2. ESTROGEN [Concomitant]
     Active Substance: ESTRONE\SUS SCROFA OVARY
     Indication: PRODUCT USED FOR UNKNOWN INDICATION
     Route: 065
     Dates: start: 20160809
  3. DOXYCYCLINE. [Concomitant]
     Active Substance: DOXYCYCLINE
     Indication: PRODUCT USED FOR UNKNOWN INDICATION
     Route: 065
     Dates: start: 20160811
  4. METHYLPREDNISOLONE. [Concomitant]
     Active Substance: METHYLPREDNISOLONE
     Indication: PRODUCT USED FOR UNKNOWN INDICATION
     Route: 065
     Dates: start: 20160809

REACTIONS (8)
  - Feeling abnormal [Recovering/Resolving]
  - Back pain [Recovering/Resolving]
  - Pain in extremity [Recovering/Resolving]
  - Chest pain [Recovering/Resolving]
  - Myalgia [Recovering/Resolving]
  - Insomnia [Recovering/Resolving]
  - Arthralgia [Recovering/Resolving]
  - Injection site pain [Recovering/Resolving]

NARRATIVE: CASE EVENT DATE: 201608
